FAERS Safety Report 17578023 (Version 1)
Quarter: 2020Q1

REPORT INFORMATION
  Report Type: Spontaneous
  Country: CA (occurrence: CA)
  Receive Date: 20200324
  Receipt Date: 20200324
  Transmission Date: 20200409
  Serious: Yes (Other)
  Sender: FDA-Public Use
  Company Number: NVSC2020CA082569

PATIENT

DRUGS (1)
  1. DIFLUPREDNATE [Suspect]
     Active Substance: DIFLUPREDNATE
     Indication: CORNEAL GRAFT REJECTION
     Dosage: UNK
     Route: 065

REACTIONS (2)
  - Intraocular pressure increased [Unknown]
  - Product use in unapproved indication [Unknown]
